FAERS Safety Report 5378634-X (Version None)
Quarter: 2007Q3

REPORT INFORMATION
  Report Type: 
  Country: None (occurrence: None)
  Receive Date: 20070702
  Receipt Date: 20070702
  Transmission Date: 20080115
  Serious: Yes (Hospitalization)
  Sender: FDA-Public Use
  Company Number: None

PATIENT
  Age: 62 Year
  Sex: Male
  Weight: 71.2147 kg

DRUGS (7)
  1. DOCETAXEL [Suspect]
     Indication: SQUAMOUS CELL CARCINOMA
     Dosage: 75 MG/M2 IV
     Route: 042
     Dates: start: 20070605, end: 20070605
  2. ZACTIMA [Suspect]
     Indication: SQUAMOUS CELL CARCINOMA
     Dosage: 100 MG/M2 IV
     Route: 042
     Dates: start: 20070605, end: 20070605
  3. ASPIRIN [Concomitant]
  4. PLAVIX [Concomitant]
  5. COLACE [Concomitant]
  6. FENTANYL TRANSDERMAL SYSTEM [Concomitant]
  7. LEVOTHYROXINE SODIUM [Concomitant]

REACTIONS (8)
  - ASPIRATION [None]
  - FAILURE TO THRIVE [None]
  - HYPOTENSION [None]
  - MALIGNANT NEOPLASM PROGRESSION [None]
  - PHARYNGEAL HAEMORRHAGE [None]
  - PNEUMONIA [None]
  - SQUAMOUS CELL CARCINOMA [None]
  - TUMOUR HAEMORRHAGE [None]
